FAERS Safety Report 8414686-8 (Version None)
Quarter: 2012Q2

REPORT INFORMATION
  Report Type: 
  Country: None (occurrence: None)
  Receive Date: 20120605
  Receipt Date: 20120604
  Transmission Date: 20120825
  Serious: Yes (Other)
  Sender: FDA-Public Use
  Company Number: US-MERCK-1204USA02538

PATIENT
  Age: 67 Year
  Sex: Female

DRUGS (2)
  1. INVANZ [Suspect]
     Indication: STREPTOCOCCAL INFECTION
     Route: 042
  2. DOXYCYCLINE [Concomitant]
     Indication: STREPTOCOCCAL INFECTION
     Route: 048

REACTIONS (1)
  - IDIOPATHIC THROMBOCYTOPENIC PURPURA [None]
